FAERS Safety Report 23365897 (Version 1)
Quarter: 2024Q1

REPORT INFORMATION
  Report Type: Report from Study
  Country: US (occurrence: US)
  Receive Date: 20240104
  Receipt Date: 20240104
  Transmission Date: 20240410
  Serious: Yes (Other)
  Sender: FDA-Public Use
  Company Number: US-ABBVIE-5508916

PATIENT
  Age: 66 Year
  Sex: Female

DRUGS (1)
  1. RINVOQ [Suspect]
     Active Substance: UPADACITINIB
     Indication: Dermatitis atopic
     Route: 048
     Dates: start: 20230705

REACTIONS (6)
  - Cardiac disorder [Recovered/Resolved]
  - Acne [Recovered/Resolved]
  - Nasal herpes [Recovered/Resolved]
  - Acne [Not Recovered/Not Resolved]
  - Oral herpes [Recovered/Resolved]
  - Oral herpes [Recovered/Resolved]

NARRATIVE: CASE EVENT DATE: 20231017
